FAERS Safety Report 11199542 (Version 1)
Quarter: 2015Q2

REPORT INFORMATION
  Report Type: Spontaneous
  Country: US (occurrence: None)
  Receive Date: 20150617
  Receipt Date: 20150617
  Transmission Date: 20150821
  Serious: No
  Sender: FDA-Public Use
  Company Number: None

PATIENT
  Age: 47 Year
  Sex: Female
  Weight: 97.5 kg

DRUGS (1)
  1. FERRIC NA GLUCONATE [Suspect]
     Active Substance: SODIUM FERRIC GLUCONATE COMPLEX
     Route: 042
     Dates: start: 20150408, end: 20150408

REACTIONS (3)
  - Urticaria [None]
  - Hypotension [None]
  - Pruritus [None]

NARRATIVE: CASE EVENT DATE: 20150409
